FAERS Safety Report 20782734 (Version 1)
Quarter: 2022Q2

REPORT INFORMATION
  Report Type: Report from Study
  Country: CA (occurrence: CA)
  Receive Date: 20220504
  Receipt Date: 20220504
  Transmission Date: 20220721
  Serious: Yes (Other)
  Sender: FDA-Public Use
  Company Number: None

PATIENT
  Age: 61 Year
  Sex: Female

DRUGS (13)
  1. MYCOPHENOLATE MOFETIL [Suspect]
     Active Substance: MYCOPHENOLATE MOFETIL
     Indication: Giant cell arteritis
  2. ACTEMRA [Suspect]
     Active Substance: TOCILIZUMAB
     Indication: Giant cell arteritis
     Dosage: 1 EVERY 2 WEEKS
     Route: 058
  3. ASPIRIN [Concomitant]
     Active Substance: ASPIRIN
  4. CALCIUM [Concomitant]
     Active Substance: CALCIUM
  5. LINACLOTIDE [Concomitant]
     Active Substance: LINACLOTIDE
  6. FOLIC ACID [Concomitant]
     Active Substance: FOLIC ACID
  7. MAGNESIUM [Concomitant]
     Active Substance: MAGNESIUM
  8. METHOTREXATE [Concomitant]
     Active Substance: METHOTREXATE
     Dosage: 1 EVERY 1 WEEKS
     Route: 058
  9. POTASSIUM [Concomitant]
     Active Substance: POTASSIUM
  10. PREDNISONE [Concomitant]
     Active Substance: PREDNISONE
  11. DENOSUMAB [Concomitant]
     Active Substance: DENOSUMAB
     Dosage: PRE FILLED SYRINGE PRESERVATIVE FREE
     Route: 058
  12. RESTASIS [Concomitant]
     Active Substance: CYCLOSPORINE
     Dosage: EMULSION
  13. ZOPICLONE [Concomitant]
     Active Substance: ZOPICLONE

REACTIONS (5)
  - Peripheral swelling [Not Recovered/Not Resolved]
  - Cellulitis [Not Recovered/Not Resolved]
  - Hypoaesthesia [Not Recovered/Not Resolved]
  - Pain [Not Recovered/Not Resolved]
  - Paraesthesia [Not Recovered/Not Resolved]
